FAERS Safety Report 13915254 (Version 9)
Quarter: 2017Q4

REPORT INFORMATION
  Report Type: Report from Study
  Country: None (occurrence: NL)
  Receive Date: 20170829
  Receipt Date: 20171018
  Transmission Date: 20180320
  Serious: Yes (Hospitalization, Other)
  Sender: FDA-Public Use
  Company Number: NL-ABBVIE-17K-114-2080299-00

PATIENT
  Age: 70 Year
  Sex: Male
  Weight: 73.6 kg

DRUGS (4)
  1. DUODOPA [Suspect]
     Active Substance: CARBIDOPA\LEVODOPA
     Dosage: MORNING DOSE: 9.0 CONTINUOUS DOSE: 4.7 EXTRA DOSE: 1.3
     Route: 050
     Dates: start: 2017
  2. LEVODOPA [Concomitant]
     Active Substance: LEVODOPA
     Indication: PRODUCT USED FOR UNKNOWN INDICATION
     Dosage: FOR THE NIGHT
  3. DUODOPA [Suspect]
     Active Substance: CARBIDOPA\LEVODOPA
     Dosage: MORNING DOSE: 9.0; CONTINUOUS DOSE: 4.8; EXTRA DOSE: 1.3
     Route: 050
     Dates: start: 2017, end: 2017
  4. DUODOPA [Suspect]
     Active Substance: CARBIDOPA\LEVODOPA
     Indication: PARKINSON^S DISEASE
     Route: 050
     Dates: start: 20170815, end: 2017

REACTIONS (14)
  - Peritonitis [Unknown]
  - Stoma site irritation [Not Recovered/Not Resolved]
  - Medical device pain [Recovered/Resolved]
  - Post procedural sepsis [Recovered/Resolved]
  - Gastrointestinal stoma complication [Not Recovered/Not Resolved]
  - Hypothermia [Not Recovered/Not Resolved]
  - Oliguria [Not Recovered/Not Resolved]
  - Stoma site extravasation [Recovered/Resolved]
  - Abdominal pain lower [Recovered/Resolved]
  - Postoperative ileus [Unknown]
  - Hyperkinesia [Recovering/Resolving]
  - Hypotension [Not Recovered/Not Resolved]
  - Asthenia [Recovering/Resolving]
  - Stoma site pain [Recovered/Resolved]

NARRATIVE: CASE EVENT DATE: 2017
